FAERS Safety Report 12207241 (Version 1)
Quarter: 2016Q1

REPORT INFORMATION
  Report Type: Spontaneous
  Country: US (occurrence: US)
  Receive Date: 20160324
  Receipt Date: 20160324
  Transmission Date: 20160526
  Serious: Yes (Other)
  Sender: FDA-Public Use
  Company Number: PHEH2016US006441

PATIENT
  Sex: Female

DRUGS (3)
  1. AREDIA [Suspect]
     Active Substance: PAMIDRONATE DISODIUM
     Indication: METASTASES TO BONE
     Dosage: UNK UNK, QMO
     Route: 065
  2. FEMARA [Suspect]
     Active Substance: LETROZOLE
     Indication: INVASIVE LOBULAR BREAST CARCINOMA
     Dosage: UNK
     Route: 065
  3. PALBOCICLIB [Suspect]
     Active Substance: PALBOCICLIB
     Indication: PRODUCT USED FOR UNKNOWN INDICATION
     Dosage: 125 MG, QD
     Route: 065

REACTIONS (6)
  - Abdominal pain [Unknown]
  - Malignant neoplasm progression [Unknown]
  - Invasive lobular breast carcinoma [Unknown]
  - Bone disorder [Unknown]
  - Metastases to bone [Unknown]
  - Bone pain [Unknown]
